FAERS Safety Report 8492916-4 (Version None)
Quarter: 2012Q3

REPORT INFORMATION
  Report Type: 
  Country: None (occurrence: None)
  Receive Date: 20120706
  Receipt Date: 20120628
  Transmission Date: 20120928
  Serious: Yes (Congenital Anomaly)
  Sender: FDA-Public Use
  Company Number: US-GLAXOSMITHKLINE-A0950766A

PATIENT
  Sex: Male
  Weight: 2.5 kg

DRUGS (4)
  1. PAXIL [Suspect]
     Indication: DEPRESSION
     Dosage: 30MG UNKNOWN
     Route: 064
  2. ANTACID [Concomitant]
  3. MULTI-VITAMINS [Concomitant]
  4. DIGOXIN [Concomitant]

REACTIONS (5)
  - FOETAL EXPOSURE DURING PREGNANCY [None]
  - TACHYCARDIA FOETAL [None]
  - RESPIRATORY DISTRESS [None]
  - PATENT DUCTUS ARTERIOSUS [None]
  - TALIPES [None]
